FAERS Safety Report 11767863 (Version 4)
Quarter: 2016Q1

REPORT INFORMATION
  Report Type: Spontaneous
  Country: SK (occurrence: SK)
  Receive Date: 20151123
  Receipt Date: 20160127
  Transmission Date: 20160525
  Serious: Yes (Other)
  Sender: FDA-Public Use
  Company Number: SK-PFIZER INC-2015383860

PATIENT
  Sex: Female

DRUGS (9)
  1. ALFA-D3 [Concomitant]
     Dosage: 1 UG, 1X/DAY (IN THE MORNING)
  2. CALTRATE [Concomitant]
     Active Substance: CALCIUM CARBONATE
     Dosage: UNK, 1X/DAY (IN THE MORNING)
  3. XALKORI [Suspect]
     Active Substance: CRIZOTINIB
     Indication: NON-SMALL CELL LUNG CANCER
     Dosage: 250 MG, 2X/DAY
  4. MOBIVENAL [Concomitant]
     Dosage: UNK, 2X/DAY
  5. ATROVENT [Concomitant]
     Active Substance: IPRATROPIUM BROMIDE
  6. LACTULOSA [Concomitant]
     Active Substance: LACTULOSE
  7. XALKORI [Suspect]
     Active Substance: CRIZOTINIB
     Dosage: 250 MG, 1X/DAY
  8. EUTHYROX [Concomitant]
     Active Substance: LEVOTHYROXINE SODIUM
     Dosage: 50 UG, ONE IN THE MORNING AND ONE AND A HALF DURING WEEKEND
  9. DIACORDIN [Concomitant]
     Dosage: UNK, 2X/DAY

REACTIONS (2)
  - Renal failure [Unknown]
  - Pneumonia [Unknown]

NARRATIVE: CASE EVENT DATE: 20151102
